FAERS Safety Report 20066182 (Version 3)
Quarter: 2021Q4

REPORT INFORMATION
  Report Type: Spontaneous
  Country: US (occurrence: US)
  Receive Date: 20211114
  Receipt Date: 20211223
  Transmission Date: 20220303
  Serious: No
  Sender: FDA-Public Use
  Company Number: US-NOVARTISTESTPH-NVSC2021US260125

PATIENT
  Age: 60 Year
  Sex: Female

DRUGS (2)
  1. XIIDRA [Suspect]
     Active Substance: LIFITEGRAST
     Indication: Product used for unknown indication
     Dosage: UNK, BID
     Route: 047
     Dates: start: 20210901, end: 20211101
  2. XIIDRA [Suspect]
     Active Substance: LIFITEGRAST
     Dosage: 0.2 ML, BID
     Route: 047
     Dates: start: 20211101, end: 20211130

REACTIONS (1)
  - Eye irritation [Unknown]
